FAERS Safety Report 9524917 (Version 4)
Quarter: 2013Q4

REPORT INFORMATION
  Report Type: Report from Study
  Country: JP (occurrence: JP)
  Receive Date: 20130916
  Receipt Date: 20131014
  Transmission Date: 20140711
  Serious: Yes (Hospitalization)
  Sender: FDA-Public Use
  Company Number: JP-ASTELLAS-2013JP008923

PATIENT
  Age: 75 Year
  Sex: Male

DRUGS (7)
  1. MIRABEGRON [Suspect]
     Indication: HYPERTONIC BLADDER
     Dosage: 50 MG, UID/QD
     Route: 048
     Dates: start: 20130516
  2. FLIVAS [Concomitant]
     Indication: BENIGN PROSTATIC HYPERPLASIA
     Dosage: 75 MG, UNKNOWN/D
     Route: 048
  3. GASTER [Concomitant]
     Indication: GASTRITIS
     Dosage: 40 MG, UNKNOWN/D
     Route: 048
  4. NEUROVITAN [Concomitant]
     Indication: ARTHRALGIA
     Dosage: 3 DF, UNKNOWN/D
     Route: 048
  5. SELBEX [Concomitant]
     Indication: GASTRITIS
     Dosage: 1.5 G, UNKNOWN/D
     Route: 048
  6. CELECOX [Concomitant]
     Indication: BACK PAIN
     Dosage: 100 MG, UNKNOWN/D
     Route: 048
  7. PATELL [Concomitant]
     Indication: BACK PAIN
     Dosage: 1 DF, UNKNOWN/D
     Route: 061

REACTIONS (1)
  - Gastric cancer [Recovering/Resolving]
